FAERS Safety Report 24579070 (Version 2)
Quarter: 2024Q4

REPORT INFORMATION
  Report Type: Spontaneous
  Country: US (occurrence: US)
  Receive Date: 20241105
  Receipt Date: 20241107
  Transmission Date: 20250115
  Serious: No
  Sender: BIOGEN
  Company Number: US-BIOGEN-2024BI01289005

PATIENT
  Age: 49 Year
  Sex: Male

DRUGS (1)
  1. VUMERITY [Suspect]
     Active Substance: DIROXIMEL FUMARATE
     Indication: Multiple sclerosis
     Route: 050
     Dates: start: 20241030

REACTIONS (4)
  - Fatigue [Unknown]
  - Headache [Unknown]
  - Paraesthesia [Unknown]
  - Limb discomfort [Unknown]

NARRATIVE: CASE EVENT DATE: 20241001
